FAERS Safety Report 7540971-8 (Version None)
Quarter: 2011Q2

REPORT INFORMATION
  Report Type: 
  Country: None (occurrence: None)
  Receive Date: 20110610
  Receipt Date: 20110531
  Transmission Date: 20111010
  Serious: Yes (Death, Hospitalization, Other)
  Sender: FDA-Public Use
  Company Number: DE-UCBSA-024569

PATIENT
  Age: 71 Year
  Sex: Female
  Weight: 67 kg

DRUGS (15)
  1. ARAVA [Concomitant]
     Indication: RHEUMATOID ARTHRITIS
     Route: 048
     Dates: start: 20090901
  2. PREDNI HEXAL [Concomitant]
     Dosage: ONCE IN THE MORNING
     Dates: start: 20100527, end: 20100905
  3. PREDNI HEXAL [Concomitant]
     Dosage: 10 MG IN THE MORNING AND 5 MG IN THE EVENING
     Dates: start: 20100906, end: 20110201
  4. OMEPRAZOLE [Concomitant]
     Indication: PROPHYLAXIS AGAINST GASTROINTESTINAL ULCER
     Route: 048
     Dates: start: 20090901
  5. SIMVASTATIN [Concomitant]
     Indication: HYPERLIPIDAEMIA
     Dosage: 40 MG 1X1/2
     Route: 048
     Dates: start: 20100501
  6. ARCOXIA [Concomitant]
     Indication: RHEUMATOID ARTHRITIS
     Dosage: FREQ.:BQ
     Route: 048
     Dates: start: 20100906
  7. ASPIRIN [Concomitant]
     Indication: ARTERIOSCLEROSIS
     Route: 048
     Dates: start: 20090101
  8. PREDNISOLONE [Concomitant]
     Indication: RHEUMATOID ARTHRITIS
     Route: 048
     Dates: start: 20090906
  9. ALENDRONIC ACID [Concomitant]
     Indication: OSTEOPOROSIS
     Route: 048
     Dates: start: 20100906
  10. MICARDIS [Concomitant]
     Indication: HYPERTENSION
     Route: 048
     Dates: start: 20100501
  11. CERTOLIZUMAB PEGOL [Suspect]
     Indication: RHEUMATOID ARTHRITIS
     Route: 058
     Dates: start: 20100920, end: 20101213
  12. PREDNI HEXAL [Concomitant]
     Indication: RHEUMATOID ARTHRITIS
     Dates: start: 20091216, end: 20100302
  13. PREDNI HEXAL [Concomitant]
     Dosage: 1/2 ONCE IN THE MORNING
     Dates: start: 20100303, end: 20100526
  14. AMLODIPINE [Concomitant]
     Indication: HYPERTENSION
     Route: 048
     Dates: start: 20100501
  15. CALCICARE D3 [Concomitant]
     Indication: OSTEOPOROSIS
     Dosage: 600/400 MG/IU
     Route: 048
     Dates: start: 20090901

REACTIONS (5)
  - SEPSIS [None]
  - CARDIAC FAILURE [None]
  - DERMATITIS PSORIASIFORM [None]
  - GASTROINTESTINAL VIRAL INFECTION [None]
  - VENTRICULAR FIBRILLATION [None]
